FAERS Safety Report 8972096 (Version 4)
Quarter: 2013Q1

REPORT INFORMATION
  Report Type: Spontaneous
  Country: ES (occurrence: ES)
  Receive Date: 20121218
  Receipt Date: 20130129
  Transmission Date: 20140127
  Serious: Yes (Death, Hospitalization, Other)
  Sender: FDA-Public Use
  Company Number: ES-VERTEX PHARMACEUTICALS INC.-2012-025775

PATIENT
  Age: 67 Year
  Sex: Female

DRUGS (8)
  1. INCIVO [Suspect]
     Indication: HEPATITIS C
     Dosage: DOSAGE FORM: TABLET
     Route: 048
     Dates: start: 20121019, end: 20121207
  2. COPEGUS [Concomitant]
     Indication: HEPATITIS C
     Dosage: DOSAGE FORM: UNSPECIFIED
     Route: 065
     Dates: start: 20121019
  3. COPEGUS [Concomitant]
     Dosage: DOSAGE FORM: UNSPECIFIED
     Route: 065
     Dates: end: 20121207
  4. PEGASYS [Concomitant]
     Indication: HEPATITIS C
     Dosage: DOSAGE FORM: UNSPECIFIED
     Route: 065
     Dates: start: 20121019, end: 20121207
  5. ANTIHYPERTENSIVE [Concomitant]
     Indication: HYPERTENSION
     Dosage: DOSAGE FORM: UNSPECIFIED
     Route: 065
  6. CEFTRIAXONE [Concomitant]
     Dosage: DOSAGE FORM: UNSPECIFIED
     Route: 065
  7. AMIKACIN [Concomitant]
     Dosage: DOSAGE FORM: UNSPECIFIED
     Route: 065
  8. PIPERACILLIN - TAZOBACTAM [Concomitant]
     Route: 065

REACTIONS (3)
  - Septic shock [Recovered/Resolved]
  - Aplasia [Fatal]
  - Anaemia [Not Recovered/Not Resolved]
